FAERS Safety Report 21141560 (Version 1)
Quarter: 2022Q3

REPORT INFORMATION
  Report Type: Spontaneous
  Country: CN (occurrence: CN)
  Receive Date: 20220728
  Receipt Date: 20220728
  Transmission Date: 20221026
  Serious: Yes (Life-Threatening, Hospitalization, Other)
  Sender: FDA-Public Use
  Company Number: CN-BAYER-2022A103843

PATIENT
  Age: 91 Year
  Sex: Male
  Weight: 53 kg

DRUGS (3)
  1. RIVAROXABAN [Suspect]
     Active Substance: RIVAROXABAN
     Indication: Anticoagulant therapy
     Dosage: 5 MG, QD
     Route: 048
     Dates: start: 20220705, end: 20220710
  2. CEFOPERAZONE SODIUM\SULBACTAM SODIUM [Suspect]
     Active Substance: CEFOPERAZONE SODIUM\SULBACTAM SODIUM
     Indication: Device related infection
     Dosage: 3 G, BID
     Route: 041
     Dates: start: 20220704, end: 20220710
  3. SODIUM CHLORIDE [Concomitant]
     Active Substance: SODIUM CHLORIDE
     Dosage: 100 ML, BID
     Route: 041
     Dates: start: 20220704

REACTIONS (3)
  - Coagulopathy [Recovered/Resolved]
  - Prescribed underdose [Unknown]
  - Underdose [Unknown]

NARRATIVE: CASE EVENT DATE: 20220705
